FAERS Safety Report 22918331 (Version 3)
Quarter: 2023Q4

REPORT INFORMATION
  Report Type: Other
  Country: US (occurrence: US)
  Receive Date: 20230907
  Receipt Date: 20231116
  Transmission Date: 20240110
  Serious: No
  Sender: FDA-Public Use
  Company Number: US-TRAVERE-2023TVT00260

PATIENT
  Age: 43 Year
  Sex: Female

DRUGS (2)
  1. FILSPARI [Suspect]
     Active Substance: SPARSENTAN
     Indication: IgA nephropathy
     Route: 048
  2. FILSPARI [Suspect]
     Active Substance: SPARSENTAN
     Route: 048

REACTIONS (9)
  - Influenza [Unknown]
  - Oropharyngeal pain [Unknown]
  - Pain [Unknown]
  - Nasopharyngitis [Unknown]
  - Chromaturia [Unknown]
  - Urine abnormality [Unknown]
  - Dizziness [Unknown]
  - Oedema peripheral [Unknown]
  - Dry skin [Unknown]

NARRATIVE: CASE EVENT DATE: 20230621
